FAERS Safety Report 14881665 (Version 1)
Quarter: 2018Q2

REPORT INFORMATION
  Report Type: Spontaneous
  Country: ES (occurrence: ES)
  Receive Date: 20180511
  Receipt Date: 20180511
  Transmission Date: 20180711
  Serious: Yes (Hospitalization)
  Sender: FDA-Public Use
  Company Number: ES-AUROBINDO-AUR-APL-2018-025261

PATIENT
  Age: 86 Year
  Sex: Male

DRUGS (3)
  1. TIMOLOL. [Concomitant]
     Active Substance: TIMOLOL
     Indication: GLAUCOMA
     Dosage: 0,5% (5ML/ML) COLIRIO 1ML:1.0.1 ()
     Route: 047
     Dates: start: 20110101
  2. MOVICOL [Concomitant]
     Active Substance: POLYETHYLENE GLYCOL 3350\POTASSIUM CHLORIDE\SODIUM BICARBONATE\SODIUM CHLORIDE
     Indication: PRODUCT USED FOR UNKNOWN INDICATION
     Dosage: 13.8 GRAM, TWO TIMES A DAY, (1-1-0)
     Route: 048
     Dates: start: 20160629
  3. MEMANTINE. [Suspect]
     Active Substance: MEMANTINE
     Indication: DEMENTIA ALZHEIMER^S TYPE
     Dosage: 20 MILLIGRAM, ONCE A DAY, (4(20MG)-0-0)
     Route: 048
     Dates: start: 20160629

REACTIONS (1)
  - Volvulus [Recovered/Resolved with Sequelae]

NARRATIVE: CASE EVENT DATE: 20170612
